FAERS Safety Report 5845627-5 (Version None)
Quarter: 2008Q3

REPORT INFORMATION
  Report Type: 
  Country: None (occurrence: None)
  Receive Date: 20080731
  Receipt Date: 20080527
  Transmission Date: 20090109
  Serious: No
  Sender: FDA-Public Use
  Company Number: US200805005597

PATIENT
  Sex: Female

DRUGS (1)
  1. BYETTA [Suspect]
     Dosage: 20 UG, SUBCUTANEOUS
     Route: 058

REACTIONS (3)
  - INCORRECT DOSE ADMINISTERED [None]
  - MALAISE [None]
  - VOMITING [None]
